FAERS Safety Report 18278047 (Version 1)
Quarter: 2020Q3

REPORT INFORMATION
  Report Type: Spontaneous
  Country: US (occurrence: US)
  Receive Date: 20200917
  Receipt Date: 20200917
  Transmission Date: 20201103
  Serious: No
  Sender: FDA-Public Use
  Company Number: US-CIRCASSIA PHARMACEUTICALS INC-2019US012736

PATIENT
  Age: 75 Year
  Sex: Female

DRUGS (1)
  1. TUDORZA PRESSAIR [Suspect]
     Active Substance: ACLIDINIUM BROMIDE
     Dosage: ONE INHALATION TWICE DAILY
     Route: 055
     Dates: start: 20190729

REACTIONS (3)
  - Product dose omission issue [Unknown]
  - Headache [Unknown]
  - Device malfunction [Unknown]

NARRATIVE: CASE EVENT DATE: 20190729
